FAERS Safety Report 8302663-7 (Version None)
Quarter: 2012Q2

REPORT INFORMATION
  Report Type: 
  Country: None (occurrence: None)
  Receive Date: 20120420
  Receipt Date: 20120412
  Transmission Date: 20120825
  Serious: Yes (Hospitalization)
  Sender: FDA-Public Use
  Company Number: US-ELI_LILLY_AND_COMPANY-US201204004456

PATIENT
  Sex: Female

DRUGS (5)
  1. HUMALOG MIX 75/25 [Suspect]
     Dosage: 20 U, EACH EVENING
  2. HUMALOG MIX 75/25 [Suspect]
     Indication: TYPE 1 DIABETES MELLITUS
     Dosage: 30 U, EACH MORNING
  3. HUMALOG MIX 75/25 [Suspect]
     Dosage: 30 U, EACH MORNING
  4. HUMALOG MIX 75/25 [Suspect]
     Dosage: 20 U, EACH EVENING
  5. GLIMEPIRIDE [Concomitant]
     Dosage: 4 MG, QD

REACTIONS (2)
  - LIMB INJURY [None]
  - FALL [None]
